FAERS Safety Report 14776139 (Version 3)
Quarter: 2018Q2

REPORT INFORMATION
  Report Type: Spontaneous
  Country: GB (occurrence: GB)
  Receive Date: 20180418
  Receipt Date: 20180502
  Transmission Date: 20180711
  Serious: Yes (Hospitalization, Other)
  Sender: FDA-Public Use
  Company Number: GB-MYLANLABS-2018M1025090

PATIENT
  Age: 26 Year
  Sex: Male

DRUGS (1)
  1. CLOZAPINE. [Suspect]
     Active Substance: CLOZAPINE
     Indication: SCHIZOPHRENIA
     Route: 065

REACTIONS (5)
  - Hyperglycaemic hyperosmolar nonketotic syndrome [Unknown]
  - Rhabdomyolysis [Unknown]
  - Cardiac ventricular thrombosis [Unknown]
  - Dyspnoea [Unknown]
  - Acute kidney injury [Unknown]
